FAERS Safety Report 14474120 (Version 1)
Quarter: 2018Q1

REPORT INFORMATION
  Report Type: Spontaneous
  Country: DE (occurrence: DE)
  Receive Date: 20180201
  Receipt Date: 20180201
  Transmission Date: 20180509
  Serious: Yes (Other)
  Sender: FDA-Public Use
  Company Number: DE-TORRENT-00007702

PATIENT
  Age: 60 Year
  Sex: Female

DRUGS (1)
  1. LEVOFLOXACIN. [Suspect]
     Active Substance: LEVOFLOXACIN
     Indication: BRONCHITIS
     Dosage: 10 TABLETS A 500 MG
     Dates: start: 201610

REACTIONS (12)
  - Tendon pain [Not Recovered/Not Resolved]
  - Mood altered [Recovered/Resolved]
  - Neuropathy peripheral [Recovered/Resolved]
  - Visual impairment [Recovered/Resolved]
  - Palpitations [Recovered/Resolved]
  - Dry skin [Recovered/Resolved]
  - Tendonitis [Recovered/Resolved]
  - Pain in extremity [Not Recovered/Not Resolved]
  - Tinnitus [Recovered/Resolved]
  - Mucosal dryness [Recovered/Resolved]
  - Panic attack [Recovered/Resolved]
  - Extrasystoles [Recovered/Resolved]
